FAERS Safety Report 4488899-4 (Version None)
Quarter: 2004Q3

REPORT INFORMATION
  Report Type: 
  Country: None (occurrence: None)
  Receive Date: 20040921
  Receipt Date: 20030728
  Transmission Date: 20050211
  Serious: Yes (Other)
  Sender: FDA-Public Use
  Company Number: 163-20785-03070581

PATIENT
  Age: 71 Year
  Sex: Male

DRUGS (4)
  1. THALOMID [Suspect]
     Indication: METASTATIC RENAL CELL CARCINOMA
     Dosage: 200 MG, QHS, ORAL
     Route: 048
     Dates: start: 20030106, end: 20030619
  2. VITAMIN C (ASCORBIC ACID) [Concomitant]
  3. PROCRIT [Concomitant]
  4. NU-IRON (POLYSACCHARIDE-IRON COMPLEX) [Concomitant]

REACTIONS (2)
  - DEEP VEIN THROMBOSIS [None]
  - DISEASE PROGRESSION [None]
